FAERS Safety Report 4536226-6 (Version None)
Quarter: 2004Q4

REPORT INFORMATION
  Report Type: 
  Country: None (occurrence: None)
  Receive Date: 20041223
  Receipt Date: 20041214
  Transmission Date: 20050328
  Serious: Yes (Other)
  Sender: FDA-Public Use
  Company Number: AU-GLAXOSMITHKLINE-B0362563A

PATIENT
  Sex: Male

DRUGS (2)
  1. AROPAX [Suspect]
     Dates: start: 20041122
  2. ALCOHOL [Concomitant]

REACTIONS (1)
  - AGGRESSION [None]
